FAERS Safety Report 11822766 (Version 1)
Quarter: 2015Q4

REPORT INFORMATION
  Report Type: Spontaneous
  Country: US (occurrence: US)
  Receive Date: 20151210
  Receipt Date: 20151210
  Transmission Date: 20160305
  Serious: No
  Sender: FDA-Public Use
  Company Number: US-PURDUE-USA-2015-0120607

PATIENT
  Sex: Male

DRUGS (3)
  1. COMPAZINE [Concomitant]
     Active Substance: PROCHLORPERAZINE MALEATE
     Indication: NAUSEA
  2. HYDROMORPHONE HCL LIQUID [Suspect]
     Active Substance: HYDROMORPHONE
     Indication: PAIN
     Dosage: 1.5 ML, SINGLE
     Route: 048
     Dates: start: 20150212, end: 20150212
  3. HYDROMORPHONE HCL LIQUID [Suspect]
     Active Substance: HYDROMORPHONE
     Dosage: 1 ML, UNK
     Route: 048
     Dates: start: 20150208, end: 20150208

REACTIONS (2)
  - Nausea [Unknown]
  - Liquid product physical issue [Unknown]
